FAERS Safety Report 9434332 (Version 1)
Quarter: 2013Q3

REPORT INFORMATION
  Report Type: Spontaneous
  Country: US (occurrence: None)
  Receive Date: 20130731
  Receipt Date: 20130731
  Transmission Date: 20140515
  Serious: Yes (Death, Life-Threatening, Hospitalization)
  Sender: FDA-Public Use
  Company Number: None

PATIENT
  Sex: 0

DRUGS (1)
  1. AMIODARONE [Suspect]
     Indication: ATRIAL FIBRILLATION
     Dosage: 1 PILL IN JULY
     Route: 048
     Dates: start: 20120715, end: 20130711

REACTIONS (4)
  - Dyspnoea [None]
  - Toxicity to various agents [None]
  - Weight decreased [None]
  - Depression [None]
